FAERS Safety Report 6454845-7 (Version None)
Quarter: 2009Q4

REPORT INFORMATION
  Report Type: 
  Country: None (occurrence: None)
  Receive Date: 20091124
  Receipt Date: 20091113
  Transmission Date: 20100525
  Serious: Yes (Other)
  Sender: FDA-Public Use
  Company Number: DE-PFIZER INC-2009291497

PATIENT
  Sex: Female

DRUGS (1)
  1. DETRUSITOL [Suspect]
     Dosage: UNK
     Dates: start: 20070101, end: 20090101

REACTIONS (2)
  - DEMENTIA WITH LEWY BODIES [None]
  - HALLUCINATION [None]
